FAERS Safety Report 4792439-X (Version None)
Quarter: 2005Q4

REPORT INFORMATION
  Report Type: 
  Country: None (occurrence: None)
  Receive Date: 20051010
  Receipt Date: 20050516
  Transmission Date: 20060501
  Serious: No
  Sender: FDA-Public Use
  Company Number: US-GLAXOSMITHKLINE-A0558800A

PATIENT
  Age: 79 Year
  Sex: Female

DRUGS (3)
  1. LANOXIN [Suspect]
     Indication: ATRIAL FIBRILLATION
     Dosage: .25MG PER DAY
     Route: 048
     Dates: start: 20050701
  2. ZOCOR [Concomitant]
  3. UNSPECIFIED MEDICATION [Concomitant]
     Indication: CHRONIC OBSTRUCTIVE PULMONARY DISEASE

REACTIONS (1)
  - MYALGIA [None]
